FAERS Safety Report 16469203 (Version 1)
Quarter: 2019Q3

REPORT INFORMATION
  Report Type: Spontaneous
  Country: US (occurrence: US)
  Receive Date: 20190621
  Receipt Date: 20190621
  Transmission Date: 20191004
  Serious: Yes (Disabling, Other)
  Sender: FDA-Public Use
  Company Number: None

PATIENT
  Age: 53 Year
  Sex: Female
  Weight: 99 kg

DRUGS (7)
  1. BUTAL/ACETAMIN/CF 50-325 MG [Concomitant]
     Active Substance: ACETAMINOPHEN\BUTALBITAL\CAFFEINE
  2. ONDANSETRON [Concomitant]
     Active Substance: ONDANSETRON
  3. TUMS [Concomitant]
     Active Substance: CALCIUM CARBONATE
  4. ADDERALL XR [Suspect]
     Active Substance: AMPHETAMINE ASPARTATE\AMPHETAMINE SULFATE\DEXTROAMPHETAMINE SACCHARATE\DEXTROAMPHETAMINE SULFATE
     Indication: ATTENTION DEFICIT/HYPERACTIVITY DISORDER
     Dosage: ?          QUANTITY:120 CAPSULE(S);?
     Route: 048
     Dates: start: 20141001, end: 20190621
  5. GABAPENTIN. [Concomitant]
     Active Substance: GABAPENTIN
  6. OXYCODONE/(GENERIC FOR (PERCOCET) [Concomitant]
  7. ALIGIN [Concomitant]

REACTIONS (5)
  - Paralysis [None]
  - Pain [None]
  - Drug ineffective [None]
  - Nausea [None]
  - Poverty of speech [None]

NARRATIVE: CASE EVENT DATE: 20190603
